FAERS Safety Report 23643359 (Version 1)
Quarter: 2024Q1

REPORT INFORMATION
  Report Type: Spontaneous
  Country: ES (occurrence: ES)
  Receive Date: 20240318
  Receipt Date: 20240318
  Transmission Date: 20240409
  Serious: Yes (Other)
  Sender: FDA-Public Use
  Company Number: ES-MEDEXUS PHARMA, INC.-2024MED00138

PATIENT
  Age: 10 Month
  Sex: Male

DRUGS (6)
  1. COAGULATION FACTOR IX RECOMBINANT HUMAN [Suspect]
     Active Substance: COAGULATION FACTOR IX RECOMBINANT HUMAN
     Indication: Factor IX deficiency
     Dosage: INITIAL; UNKNOWN
  2. COAGULATION FACTOR IX RECOMBINANT HUMAN [Suspect]
     Active Substance: COAGULATION FACTOR IX RECOMBINANT HUMAN
     Dosage: ALBUTREPENONACOG ALFA [RFIX-FP], 20 IU/KG
  3. COAGULATION FACTOR IX RECOMBINANT HUMAN [Suspect]
     Active Substance: COAGULATION FACTOR IX RECOMBINANT HUMAN
     Dosage: ALBUTREPENONACOG ALFA [RFIX-FP] 40 IU/KG
  4. COAGULATION FACTOR IX RECOMBINANT HUMAN [Suspect]
     Active Substance: COAGULATION FACTOR IX RECOMBINANT HUMAN
     Dosage: ALBUTREPENONACOG ALFA [RFIX-FP], 50 IU/KG
  5. COAGULATION FACTOR IX RECOMBINANT HUMAN [Suspect]
     Active Substance: COAGULATION FACTOR IX RECOMBINANT HUMAN
     Dosage: RFIX-FP COMBINED WITH RFVIIA PROPHYLAXIS
  6. COAGULATION FACTOR IX RECOMBINANT HUMAN [Suspect]
     Active Substance: COAGULATION FACTOR IX RECOMBINANT HUMAN
     Dosage: 35 IU/KG/WEEK

REACTIONS (2)
  - Anaphylactic reaction [Recovered/Resolved]
  - Anti factor IX antibody increased [Not Recovered/Not Resolved]
